FAERS Safety Report 8967289 (Version 1)
Quarter: 2012Q4

REPORT INFORMATION
  Report Type: 
  Country: US (occurrence: US)
  Receive Date: 20121214
  Receipt Date: 20121214
  Transmission Date: 20130627
  Serious: No
  Sender: FDA-Public Use
  Company Number: US-GLAXOSMITHKLINE-A0980806A

PATIENT
  Age: 49 Year
  Sex: Male

DRUGS (4)
  1. FLONASE [Suspect]
     Indication: RHINITIS ALLERGIC
     Dosage: 1PUFF See dosage text
     Route: 045
     Dates: start: 200906
  2. VITAMINS [Concomitant]
  3. ASPIRIN LOW DOSE [Concomitant]
  4. NONE [Concomitant]

REACTIONS (6)
  - Epistaxis [Recovering/Resolving]
  - Sinusitis [Recovering/Resolving]
  - Paranasal sinus hypersecretion [Recovering/Resolving]
  - Productive cough [Recovering/Resolving]
  - Drug ineffective [Unknown]
  - Product quality issue [Unknown]
